FAERS Safety Report 13725872 (Version 1)
Quarter: 2017Q3

REPORT INFORMATION
  Report Type: Spontaneous
  Country: US (occurrence: US)
  Receive Date: 20170706
  Receipt Date: 20170706
  Transmission Date: 20171127
  Serious: Yes (Other)
  Sender: FDA-Public Use
  Company Number: None

PATIENT
  Age: 46 Year
  Sex: Female
  Weight: 83.25 kg

DRUGS (8)
  1. ALBUTEROL. [Concomitant]
     Active Substance: ALBUTEROL
  2. VITAMIN B COMPLEX [Concomitant]
     Active Substance: CYANOCOBALAMIN\DEXPANTHENOL\NIACINAMIDE\PYRIDOXINE HYDROCHLORIDE\RIBOFLAVIN 5^-PHOSPHATE SODIUM\THIAMINE HYDROCHLORIDE\VITAMIN B COMPLEX
  3. CYMBALTA [Suspect]
     Active Substance: DULOXETINE HYDROCHLORIDE
     Indication: DEPRESSION
     Dosage: ?          OTHER STRENGTH:MG;QUANTITY:1 TABLET(S);?
     Route: 048
  4. SYNTHROID [Concomitant]
     Active Substance: LEVOTHYROXINE SODIUM
  5. ADVIL [Concomitant]
     Active Substance: IBUPROFEN
  6. VITAMIN B12 [Concomitant]
     Active Substance: CYANOCOBALAMIN
  7. LOSARTAN. [Concomitant]
     Active Substance: LOSARTAN
  8. OMEPRAZOLE. [Concomitant]
     Active Substance: OMEPRAZOLE

REACTIONS (8)
  - Withdrawal syndrome [None]
  - Dizziness [None]
  - Weight increased [None]
  - Therapy change [None]
  - Blood pressure increased [None]
  - Memory impairment [None]
  - Blood cholesterol increased [None]
  - Paraesthesia [None]

NARRATIVE: CASE EVENT DATE: 20161223
